FAERS Safety Report 24009862 (Version 1)
Quarter: 2024Q2

REPORT INFORMATION
  Report Type: Spontaneous
  Country: US (occurrence: None)
  Receive Date: 20240624
  Receipt Date: 20240624
  Transmission Date: 20240716
  Serious: Yes (Hospitalization)
  Sender: FDA-Public Use
  Company Number: None

PATIENT
  Sex: Male

DRUGS (1)
  1. RYDAPT [Suspect]
     Active Substance: MIDOSTAURIN
     Indication: Product used for unknown indication
     Dosage: FREQ: TAKE 2 CAPSULES BY MOUTH TWICE DAILY FOR 14 DAYS?
     Route: 048
     Dates: start: 20240614

REACTIONS (1)
  - Hospitalisation [None]
